FAERS Safety Report 9662944 (Version 3)
Quarter: 2014Q1

REPORT INFORMATION
  Report Type: Report from Study
  Country: US (occurrence: US)
  Receive Date: 20131031
  Receipt Date: 20140210
  Transmission Date: 20141002
  Serious: Yes (Other)
  Sender: FDA-Public Use
  Company Number: US-ABBVIE-13P-163-1151148-00

PATIENT
  Age: 50 Year
  Sex: Female

DRUGS (9)
  1. HUMIRA [Suspect]
     Indication: CROHN^S DISEASE
     Dosage: DAY 1
     Dates: start: 20130712
  2. HUMIRA [Suspect]
     Dosage: DAY 15
     Dates: end: 20130824
  3. MERCAPTOPURINE [Concomitant]
     Indication: CROHN^S DISEASE
  4. VIT D [Concomitant]
     Indication: PRODUCT USED FOR UNKNOWN INDICATION
  5. HYDROCODONE [Concomitant]
     Indication: PRODUCT USED FOR UNKNOWN INDICATION
     Dosage: 5/500MG, AS NEEDED
  6. CIPRO [Concomitant]
     Indication: CROHN^S DISEASE
  7. BACTRIM [Concomitant]
     Indication: CROHN^S DISEASE
  8. XANAX [Concomitant]
     Indication: PRODUCT USED FOR UNKNOWN INDICATION
     Dosage: IN THE EVENINGS
  9. NEXIUM [Concomitant]
     Indication: GASTROOESOPHAGEAL REFLUX DISEASE

REACTIONS (2)
  - Ovarian cyst [Not Recovered/Not Resolved]
  - Colon cancer [Not Recovered/Not Resolved]
